FAERS Safety Report 4826486-6 (Version None)
Quarter: 2005Q4

REPORT INFORMATION
  Report Type: 
  Country: None (occurrence: None)
  Receive Date: 20051014
  Receipt Date: 20050908
  Transmission Date: 20060501
  Serious: Yes (Other)
  Sender: FDA-Public Use
  Company Number: 2005126039

PATIENT
  Age: 76 Year
  Sex: Female
  Weight: 73.4827 kg

DRUGS (7)
  1. MACUGEN [Suspect]
     Indication: MACULAR DEGENERATION
     Dates: start: 20050829
  2. PREDNISONE [Suspect]
     Indication: ILL-DEFINED DISORDER
     Dosage: OPHTHALMIC
     Route: 047
     Dates: start: 20050829, end: 20050901
  3. SYNTHROID [Concomitant]
  4. CRESTOR [Concomitant]
  5. OCUVITE (ASCORBIC ACID, RETINOL, TOCOPHEROL) [Concomitant]
  6. XALATAN [Concomitant]
  7. GATIFLOXACIN [Concomitant]

REACTIONS (7)
  - DYSGEUSIA [None]
  - EYE PAIN [None]
  - FACIAL PAIN [None]
  - INTRAOCULAR PRESSURE INCREASED [None]
  - NASOPHARYNGITIS [None]
  - OCULAR HYPERAEMIA [None]
  - VITREOUS FLOATERS [None]
